FAERS Safety Report 7306384-9 (Version None)
Quarter: 2011Q1

REPORT INFORMATION
  Report Type: 
  Country: None (occurrence: None)
  Receive Date: 20110119
  Receipt Date: 20100830
  Transmission Date: 20110831
  Serious: Yes (Disabling, Other)
  Sender: FDA-Public Use
  Company Number: A-US2010-39407

PATIENT
  Age: 65 Year
  Sex: Male

DRUGS (4)
  1. TRACLEER [Suspect]
     Indication: PULMONARY ARTERIAL HYPERTENSION
     Dosage: ORAL
     Route: 048
     Dates: start: 20100807
  2. VENTAVIS [Suspect]
     Indication: PULMONARY ARTERIAL HYPERTENSION
     Dosage: 20 UG, RESPIRATORY, 20 UG, RESPIRATORY
     Route: 055
     Dates: start: 20090611
  3. VENTAVIS [Suspect]
     Indication: PULMONARY ARTERIAL HYPERTENSION
     Dosage: 20 UG, RESPIRATORY, 20 UG, RESPIRATORY
     Route: 055
     Dates: start: 20090611
  4. VENTAVIS [Suspect]

REACTIONS (3)
  - OEDEMA PERIPHERAL [None]
  - SWELLING [None]
  - OEDEMA [None]
